FAERS Safety Report 8076635-4 (Version None)
Quarter: 2012Q1

REPORT INFORMATION
  Report Type: 
  Country: None (occurrence: None)
  Receive Date: 20120127
  Receipt Date: 20120124
  Transmission Date: 20120608
  Serious: Yes (Death, Other)
  Sender: FDA-Public Use
  Company Number: PHHY2011AU80822

PATIENT
  Age: 62 Year
  Sex: Female

DRUGS (1)
  1. PREDNISOLONE [Suspect]
     Indication: UVEITIS
     Dosage: 1 MG/KG/DAY
     Route: 048

REACTIONS (9)
  - NEUROLOGICAL DECOMPENSATION [None]
  - RETINAL DETACHMENT [None]
  - RETINAL HAEMORRHAGE [None]
  - DELIRIUM [None]
  - VISUAL ACUITY REDUCED [None]
  - ENCEPHALITIS HERPES [None]
  - BLINDNESS [None]
  - UNRESPONSIVE TO STIMULI [None]
  - UVEITIS [None]
